FAERS Safety Report 17775538 (Version 8)
Quarter: 2022Q4

REPORT INFORMATION
  Report Type: Report from Study
  Country: US (occurrence: US)
  Receive Date: 20200513
  Receipt Date: 20221227
  Transmission Date: 20230113
  Serious: No
  Sender: FDA-Public Use
  Company Number: US-ACADIA PHARMACEUTICALS INC.-ACA-2020-PIM-000974

PATIENT
  Age: 75 Year
  Sex: Male

DRUGS (18)
  1. NUPLAZID [Suspect]
     Active Substance: PIMAVANSERIN TARTRATE
     Indication: Parkinson^s disease psychosis
     Dosage: 34 MILLIGRAM, QD
     Route: 048
     Dates: start: 20200318, end: 20200320
  2. NUPLAZID [Suspect]
     Active Substance: PIMAVANSERIN TARTRATE
     Indication: Hallucination
     Dosage: 34 MILLIGRAM, QD
     Route: 048
  3. NUPLAZID [Suspect]
     Active Substance: PIMAVANSERIN TARTRATE
     Indication: Delusion
     Dosage: 34 MILLIGRAM, QD
     Route: 048
     Dates: start: 20210312, end: 20210405
  4. NUPLAZID [Suspect]
     Active Substance: PIMAVANSERIN TARTRATE
     Dosage: 34 MILLIGRAM, QD
     Route: 048
  5. PRAMIPEXOLE [Concomitant]
     Active Substance: PRAMIPEXOLE
     Dosage: 0.5 MG
  6. SEROQUEL [Concomitant]
     Active Substance: QUETIAPINE FUMARATE
     Indication: Anxiety
     Dosage: 100MG, 1/2 TAB AT NOON AND 4PM AND 1 TAB AT BEDTIME
     Dates: start: 20211209
  7. SEROQUEL [Concomitant]
     Active Substance: QUETIAPINE FUMARATE
     Indication: Agitation
     Dosage: 50 MG, 1/2 TAB IN MORNING, MAY TAKE 1 TAB TWICE DAILY PRN
     Route: 048
     Dates: start: 20220523
  8. RIVASTIGMINE [Concomitant]
     Active Substance: RIVASTIGMINE
  9. SINEMET [Concomitant]
     Active Substance: CARBIDOPA\LEVODOPA
     Dosage: 25-100 MG, 1 TABLET THREE TIMES DAILY
     Route: 048
  10. ZOLOFT [Concomitant]
     Active Substance: SERTRALINE HYDROCHLORIDE
     Indication: Major depression
     Dosage: 150 MILLIGRAM, QD
     Route: 048
  11. ZOLOFT [Concomitant]
     Active Substance: SERTRALINE HYDROCHLORIDE
     Dosage: 100 MILLIGRAM, QD
     Route: 048
     Dates: start: 20220328
  12. ZOLOFT [Concomitant]
     Active Substance: SERTRALINE HYDROCHLORIDE
     Dosage: 50MG TAKE WITH SERTRALINE 100MG TAB
     Dates: start: 202203
  13. ASPIRIN [Concomitant]
     Active Substance: ASPIRIN
     Dosage: 81 MILLIGRAM NIGHTLY
     Route: 048
     Dates: start: 20170629
  14. KLONOPIN [Concomitant]
     Active Substance: CLONAZEPAM
     Dosage: 1 MILLIGRAM, 1 AND 1/2 TABLET AT BEDTIME
     Dates: start: 20220328
  15. TYLENOL [Concomitant]
     Active Substance: ACETAMINOPHEN
     Indication: Pain
     Dosage: 650 MILLIGRAM, EVERY 6 HOURS AS NEEDED
     Route: 048
     Dates: start: 20211217
  16. ATIVAN [Concomitant]
     Active Substance: LORAZEPAM
     Indication: Agitation
     Dosage: 0.5 MG, 1 TABLET QD, PRN
     Dates: start: 20220518
  17. REMERON [Concomitant]
     Active Substance: MIRTAZAPINE
     Dosage: 7.5 MG TABLET NIGHTLY
     Route: 048
     Dates: start: 20211209
  18. EXELON [Concomitant]
     Active Substance: RIVASTIGMINE TARTRATE
     Dosage: 4.6 MG/24

REACTIONS (13)
  - Muscular weakness [Unknown]
  - Parkinson^s disease [Not Recovered/Not Resolved]
  - Asthenia [Unknown]
  - Blood pressure decreased [Unknown]
  - Product dose omission issue [Unknown]
  - Condition aggravated [Unknown]
  - Parkinson^s disease [Not Recovered/Not Resolved]
  - Gait disturbance [Unknown]
  - Gait disturbance [Not Recovered/Not Resolved]
  - Gait disturbance [Not Recovered/Not Resolved]
  - Gait disturbance [Not Recovered/Not Resolved]
  - Fall [Unknown]
  - Gait disturbance [Not Recovered/Not Resolved]

NARRATIVE: CASE EVENT DATE: 20200301
